FAERS Safety Report 10355077 (Version 3)
Quarter: 2014Q3

REPORT INFORMATION
  Report Type: Spontaneous
  Country: FI (occurrence: FI)
  Receive Date: 20140731
  Receipt Date: 20140908
  Transmission Date: 20150326
  Serious: Yes (Hospitalization)
  Sender: FDA-Public Use
  Company Number: FI-JNJFOC-20140712019

PATIENT
  Age: 68 Year
  Sex: Male

DRUGS (6)
  1. REOPRO [Suspect]
     Active Substance: ABCIXIMAB
     Indication: CORONARY ARTERY THROMBOSIS
     Route: 042
     Dates: start: 20140709
  2. CORDARONE [Concomitant]
     Active Substance: AMIODARONE HYDROCHLORIDE
     Route: 041
     Dates: start: 20140709
  3. LIDOCAINE 1% [Concomitant]
     Active Substance: LIDOCAINE
     Route: 058
     Dates: start: 20140709
  4. NITROGLYCERIN. [Concomitant]
     Active Substance: NITROGLYCERIN
     Route: 042
     Dates: start: 20140709
  5. PLAVIX [Concomitant]
     Active Substance: CLOPIDOGREL BISULFATE
     Route: 065
  6. OXANEST [Concomitant]
     Active Substance: OXYCODONE HYDROCHLORIDE
     Route: 042
     Dates: start: 20140709

REACTIONS (4)
  - Drug ineffective [Unknown]
  - Coronary artery thrombosis [Recovering/Resolving]
  - Inappropriate schedule of drug administration [Unknown]
  - Adverse event [Unknown]

NARRATIVE: CASE EVENT DATE: 20140709
